FAERS Safety Report 19793643 (Version 3)
Quarter: 2024Q1

REPORT INFORMATION
  Report Type: Report from Study
  Country: FR (occurrence: FR)
  Receive Date: 20210906
  Receipt Date: 20240215
  Transmission Date: 20240409
  Serious: Yes (Death, Life-Threatening)
  Sender: FDA-Public Use
  Company Number: FR-SERVIER-S21006233

PATIENT

DRUGS (9)
  1. PEGASPARGASE [Suspect]
     Active Substance: PEGASPARGASE
     Indication: Acute lymphocytic leukaemia
     Dosage: 2600 IU, (D12, D26)
     Route: 042
     Dates: start: 20210430, end: 20210514
  2. DAUNORUBICIN [Suspect]
     Active Substance: DAUNORUBICIN
     Indication: Acute lymphocytic leukaemia
     Dosage: 42 MG, (D8, D15, D22, D29)
     Route: 048
     Dates: start: 20210424, end: 20210518
  3. VINCRISTINE SULFATE [Suspect]
     Active Substance: VINCRISTINE SULFATE
     Indication: Acute lymphocytic leukaemia
     Dosage: 1.5 MG, (D8, D15, D22, D29)
     Route: 048
     Dates: start: 20210424, end: 20210518
  4. METHOTREXATE [Suspect]
     Active Substance: METHOTREXATE
     Indication: Acute lymphocytic leukaemia
     Dosage: 12 MG, D1, D13, D24
     Route: 037
     Dates: start: 20210424, end: 20210517
  5. PREDNISOLONE [Suspect]
     Active Substance: PREDNISOLONE
     Indication: Acute lymphocytic leukaemia
     Dosage: 20 MG, D21-D28
     Route: 042
     Dates: start: 20210427, end: 20210518
  6. CYCLOPHOSPHAMIDE [Suspect]
     Active Substance: CYCLOPHOSPHAMIDE
     Indication: Acute lymphocytic leukaemia
     Dosage: 1040 MG, D9
     Route: 042
     Dates: start: 20210428, end: 20210428
  7. CYTARABINE [Suspect]
     Active Substance: CYTARABINE
     Indication: Acute lymphocytic leukaemia
     Dosage: 30 MG, D13, D24
     Route: 037
     Dates: start: 20210502, end: 20210518
  8. HYDROCORTISONE [Suspect]
     Active Substance: HYDROCORTISONE
     Indication: Acute lymphocytic leukaemia
     Dosage: 15 MG, D13, D24
     Route: 037
     Dates: start: 20210502, end: 20210517
  9. ESOMEPRAZOLE [Concomitant]
     Active Substance: ESOMEPRAZOLE
     Indication: Product used for unknown indication
     Dosage: UNK
     Route: 065

REACTIONS (5)
  - Pancreatitis acute [Fatal]
  - Multiple organ dysfunction syndrome [Fatal]
  - Varicella [Fatal]
  - Gastrointestinal haemorrhage [Fatal]
  - Clostridium difficile colitis [Recovered/Resolved]

NARRATIVE: CASE EVENT DATE: 20210506
